FAERS Safety Report 4827089-X (Version None)
Quarter: 2005Q4

REPORT INFORMATION
  Report Type: 
  Country: None (occurrence: None)
  Receive Date: 20051114
  Receipt Date: 20051104
  Transmission Date: 20060501
  Serious: Yes (Death)
  Sender: FDA-Public Use
  Company Number: CA-GLAXOSMITHKLINE-A0581070A

PATIENT
  Age: 63 Year
  Sex: Female
  Weight: 50.9 kg

DRUGS (1)
  1. FLOLAN [Suspect]
     Indication: DRUG USE FOR UNKNOWN INDICATION
     Dosage: 1.5MG TWICE PER DAY
     Route: 042
     Dates: start: 20030401

REACTIONS (1)
  - DISEASE PROGRESSION [None]
